FAERS Safety Report 25915328 (Version 4)
Quarter: 2025Q4

REPORT INFORMATION
  Report Type: Spontaneous
  Country: TR (occurrence: TR)
  Receive Date: 20251013
  Receipt Date: 20251208
  Transmission Date: 20260117
  Serious: Yes (Other)
  Sender: BRISTOL-MYERS SQUIBB COMPANY
  Company Number: TR-BRISTOL-MYERS SQUIBB COMPANY-2025-124387

PATIENT
  Age: 46 Year
  Sex: Male

DRUGS (2)
  1. OPDIVO [Suspect]
     Active Substance: NIVOLUMAB
     Indication: Bladder cancer
  2. YERVOY [Suspect]
     Active Substance: IPILIMUMAB
     Indication: Bladder cancer

REACTIONS (7)
  - Off label use [Unknown]
  - Inability to afford medication [Unknown]
  - Pneumothorax [Unknown]
  - Urinary tract infection [Unknown]
  - Abdominal mass [Unknown]
  - Post procedural complication [Unknown]
  - Drug ineffective [Unknown]
